FAERS Safety Report 8172709-8 (Version None)
Quarter: 2012Q1

REPORT INFORMATION
  Report Type: 
  Country: None (occurrence: None)
  Receive Date: 20120229
  Receipt Date: 20120220
  Transmission Date: 20120608
  Serious: Yes (Other)
  Sender: FDA-Public Use
  Company Number: FR-AMGEN-FRASP2012011963

PATIENT
  Age: 62 Year
  Sex: Female

DRUGS (2)
  1. CORTISONE ACETATE [Concomitant]
     Dosage: UNK
  2. ENBREL [Suspect]
     Indication: RHEUMATOID ARTHRITIS
     Dosage: 25 MG, WEEKLY

REACTIONS (3)
  - SKIN INFECTION [None]
  - TOOTH ABSCESS [None]
  - DEVICE BREAKAGE [None]
